FAERS Safety Report 10760993 (Version 1)
Quarter: 2015Q1

REPORT INFORMATION
  Report Type: Other
  Country: NO (occurrence: NO)
  Receive Date: 20150204
  Receipt Date: 20150204
  Transmission Date: 20150721
  Serious: No
  Sender: FDA-Public Use
  Company Number: NO-LUPIN PHARMACEUTICALS INC.-2014-01878

PATIENT
  Age: 40 Day
  Sex: Female
  Weight: 4.74 kg

DRUGS (1)
  1. TOPIRAMATE. [Suspect]
     Active Substance: TOPIRAMATE
     Indication: EPILEPSY
     Route: 063

REACTIONS (2)
  - Exposure during breast feeding [Unknown]
  - Diarrhoea [Recovering/Resolving]
